FAERS Safety Report 8141719-9 (Version None)
Quarter: 2012Q1

REPORT INFORMATION
  Report Type: 
  Country: None (occurrence: None)
  Receive Date: 20120216
  Receipt Date: 20120210
  Transmission Date: 20120608
  Serious: Yes (Other)
  Sender: FDA-Public Use
  Company Number: PHEH2006US01233

PATIENT
  Sex: Female

DRUGS (16)
  1. ZOMETA [Suspect]
  2. ALPRAZOLAM [Concomitant]
  3. LOVENOX [Concomitant]
  4. PREDNISONE [Concomitant]
  5. DIGOXIN [Concomitant]
  6. CELECOXIB [Concomitant]
  7. TORADOL [Concomitant]
  8. ASCORBIC ACID [Concomitant]
     Dosage: UNK
  9. RANIDINE [Concomitant]
  10. ZOFRAN [Concomitant]
  11. INVANZ [Concomitant]
  12. ROCEPHIN [Concomitant]
  13. ENOXAPARIN [Concomitant]
  14. NAPROXEN [Concomitant]
  15. DILAUDID [Concomitant]
  16. CYCLOSPORINE [Concomitant]

REACTIONS (30)
  - NEPHROLITHIASIS [None]
  - DYSURIA [None]
  - OSTEOPOROSIS [None]
  - ARTHRITIS [None]
  - ANXIETY [None]
  - IRRITABLE BOWEL SYNDROME [None]
  - GASTRIC ULCER [None]
  - PYELONEPHRITIS [None]
  - DEEP VEIN THROMBOSIS [None]
  - OEDEMA PERIPHERAL [None]
  - DYSPEPSIA [None]
  - CALCULUS URETERIC [None]
  - CAROTID BRUIT [None]
  - ARTHRALGIA [None]
  - OSTEONECROSIS OF JAW [None]
  - URINARY TRACT INFECTION [None]
  - MYOFASCIAL PAIN SYNDROME [None]
  - ACTINIC KERATOSIS [None]
  - CYSTOCELE [None]
  - ABDOMINAL PAIN [None]
  - SPINAL OSTEOARTHRITIS [None]
  - PAPILLOMA VIRAL INFECTION [None]
  - MIGRAINE [None]
  - OBSTRUCTIVE UROPATHY [None]
  - FLANK PAIN [None]
  - CARDIOMYOPATHY [None]
  - CARPAL TUNNEL SYNDROME [None]
  - DYSPNOEA EXERTIONAL [None]
  - RENAL COLIC [None]
  - ARRHYTHMIA [None]
